FAERS Safety Report 7708304 (Version 4)
Quarter: 2015Q1

REPORT INFORMATION
  Report Type: Report from Study
  Country: BR (occurrence: BR)
  Receive Date: 20101214
  Receipt Date: 20150227
  Transmission Date: 20150721
  Serious: Yes (Other)
  Sender: FDA-Public Use
  Company Number: BR-PFIZER INC-2010153107

PATIENT
  Age: 63 Year
  Sex: Female
  Weight: 49.5 kg

DRUGS (11)
  1. PURAN [Concomitant]
     Active Substance: LEVOTHYROXINE SODIUM
     Indication: THYROID NODULE REMOVAL
     Dosage: 75 UG, 1X/DAY
     Route: 048
     Dates: start: 2002
  2. CHAMPIX [Suspect]
     Active Substance: VARENICLINE TARTRATE
     Indication: TOBACCO USER
     Dosage: UNK
     Route: 048
     Dates: start: 20101113
  3. MICARDIS [Concomitant]
     Active Substance: TELMISARTAN
     Indication: HYPERTENSION
     Dosage: 80 MG, 1X/DAY
     Route: 048
     Dates: start: 201002
  4. CHAMPIX [Suspect]
     Active Substance: VARENICLINE TARTRATE
     Dosage: 1 TABLET, TWICE DAILY
     Route: 048
  5. DONAREN [Concomitant]
     Active Substance: TRAZODONE HYDROCHLORIDE
     Dosage: 50 MG, 1X/DAY
  6. DONAREN [Concomitant]
     Active Substance: TRAZODONE HYDROCHLORIDE
     Indication: ANTIDEPRESSANT THERAPY
     Dosage: 100 MG (TWO TABLETS OF 50 MG), 1X/DAY
     Dates: start: 2007
  7. CHAMPIX [Suspect]
     Active Substance: VARENICLINE TARTRATE
     Dosage: 0.5 MG, 2X/DAY (EVERY 12 HOURS)
     Route: 048
  8. RIVOTRIL [Concomitant]
     Active Substance: CLONAZEPAM
     Indication: INSOMNIA
     Dosage: 0.5 MG, 1X/DAY
     Route: 048
  9. CORUS [Concomitant]
     Active Substance: LOSARTAN POTASSIUM
     Indication: HYPERTENSION
     Dosage: 50 MG, 1X/DAY
  10. FLURAZEPAM [Concomitant]
     Active Substance: FLURAZEPAM\FLURAZEPAM HYDROCHLORIDE
     Indication: INSOMNIA
     Dosage: 30 MG, 1X/DAY
  11. OSTEOFORM [Concomitant]
     Indication: OSTEOPENIA
     Dosage: 70 MG, WEEKLY

REACTIONS (16)
  - Labyrinthitis [Not Recovered/Not Resolved]
  - Somnolence [Unknown]
  - Fatigue [Not Recovered/Not Resolved]
  - Blood pressure increased [Not Recovered/Not Resolved]
  - Increased appetite [Unknown]
  - Nightmare [Not Recovered/Not Resolved]
  - Anxiety [Not Recovered/Not Resolved]
  - Asthenia [Not Recovered/Not Resolved]
  - Nausea [Unknown]
  - Irritability [Unknown]
  - Dizziness [Not Recovered/Not Resolved]
  - Bedridden [Unknown]
  - Limb discomfort [Not Recovered/Not Resolved]
  - Pain in extremity [Not Recovered/Not Resolved]
  - Feeling abnormal [Unknown]
  - Abnormal dreams [Unknown]

NARRATIVE: CASE EVENT DATE: 2010
